FAERS Safety Report 7560217-4 (Version None)
Quarter: 2011Q2

REPORT INFORMATION
  Report Type: 
  Country: None (occurrence: None)
  Receive Date: 20110621
  Receipt Date: 20110615
  Transmission Date: 20111010
  Serious: Yes (Hospitalization)
  Sender: FDA-Public Use
  Company Number: Z0010025A

PATIENT
  Age: 56 Year
  Sex: Female
  Weight: 70.2 kg

DRUGS (5)
  1. GW685698 + GW642444 INHALATION POWDER [Suspect]
     Indication: CHRONIC OBSTRUCTIVE PULMONARY DISEASE
     Route: 055
     Dates: start: 20100609, end: 20110607
  2. PREDNISONE TAPER [Concomitant]
     Dosage: 30MG PER DAY
     Route: 048
     Dates: start: 20110611
  3. ADVAIR DISKUS 100/50 [Suspect]
     Indication: CHRONIC OBSTRUCTIVE PULMONARY DISEASE
     Route: 055
     Dates: start: 20100512, end: 20100609
  4. DOXYCYCLINE [Concomitant]
     Dosage: 100MG TWICE PER DAY
     Route: 048
     Dates: start: 20110608
  5. SOLU-MEDROL [Concomitant]
     Dosage: 40MG THREE TIMES PER DAY
     Route: 042
     Dates: start: 20110608, end: 20110610

REACTIONS (1)
  - CHRONIC OBSTRUCTIVE PULMONARY DISEASE [None]
